FAERS Safety Report 13422412 (Version 1)
Quarter: 2017Q2

REPORT INFORMATION
  Report Type: Spontaneous
  Country: US (occurrence: US)
  Receive Date: 20170409
  Receipt Date: 20170409
  Transmission Date: 20170830
  Serious: Yes (Disabling)
  Sender: FDA-Public Use
  Company Number: None

PATIENT
  Age: 58 Year
  Sex: Female
  Weight: 65.7 kg

DRUGS (1)
  1. TYLENOL REGULAR STRENGTH [Suspect]
     Active Substance: ACETAMINOPHEN
     Indication: RENAL PAIN
     Dosage: QUANTITY:2 LIQUID GELS;?
     Route: 048
     Dates: start: 20170315, end: 20170320

REACTIONS (4)
  - Incorrect dose administered [None]
  - Headache [None]
  - Hyperhidrosis [None]
  - Toxicity to various agents [None]

NARRATIVE: CASE EVENT DATE: 20170315
